FAERS Safety Report 10481262 (Version 1)
Quarter: 2014Q3

REPORT INFORMATION
  Report Type: Spontaneous
  Country: US (occurrence: None)
  Receive Date: 20140908
  Receipt Date: 20140908
  Transmission Date: 20150326
  Serious: Yes (Other)
  Sender: FDA-Public Use
  Company Number: 388110

PATIENT
  Age: 65 Year
  Sex: Female
  Weight: 99.8 kg

DRUGS (6)
  1. ACCUPRIL [Concomitant]
     Active Substance: QUINAPRIL HYDROCHLORIDE
  2. ZOFRAN /00955301/ (ONDANSETRON) [Concomitant]
  3. VITAMIN D3 [Concomitant]
     Active Substance: CHOLECALCIFEROL
  4. VICTOZA [Suspect]
     Active Substance: LIRAGLUTIDE
     Indication: TYPE 2 DIABETES MELLITUS
     Route: 058
     Dates: start: 20120313
  5. ALPRAZOLAM. [Concomitant]
     Active Substance: ALPRAZOLAM
  6. EFFEXOR (VENLAFAXINE HYDROCHLORIDE) [Concomitant]

REACTIONS (5)
  - Cholelithiasis [None]
  - Weight increased [None]
  - Glycosylated haemoglobin increased [None]
  - Abdominal distension [None]
  - Pancreatitis [None]

NARRATIVE: CASE EVENT DATE: 201309
